FAERS Safety Report 6135717-4 (Version None)
Quarter: 2009Q1

REPORT INFORMATION
  Report Type: 
  Country: None (occurrence: None)
  Receive Date: 20090327
  Receipt Date: 20090313
  Transmission Date: 20090719
  Serious: Yes (Hospitalization, Other)
  Sender: FDA-Public Use
  Company Number: US-PFIZER INC-2009189493

PATIENT
  Sex: Male
  Weight: 116 kg

DRUGS (2)
  1. SOLU-MEDROL [Suspect]
     Indication: MULTIPLE SCLEROSIS RELAPSE
     Dosage: UNK
     Route: 042
     Dates: start: 20090309, end: 20090313
  2. REBIF [Suspect]
     Indication: MULTIPLE SCLEROSIS
     Dosage: 44 UG, UNK
     Route: 058
     Dates: start: 20081030

REACTIONS (3)
  - ARRHYTHMIA [None]
  - HEAT EXHAUSTION [None]
  - MULTIPLE SCLEROSIS RELAPSE [None]
